FAERS Safety Report 6304300-X (Version None)
Quarter: 2009Q3

REPORT INFORMATION
  Report Type: 
  Country: None (occurrence: None)
  Receive Date: 20090811
  Receipt Date: 20090810
  Transmission Date: 20100115
  Serious: Yes (Other)
  Sender: FDA-Public Use
  Company Number: US-PFIZER INC-2009232692

PATIENT
  Sex: Female

DRUGS (2)
  1. NORVASC [Suspect]
     Dosage: UNK
  2. ATENOLOL [Suspect]
     Dosage: UNK

REACTIONS (5)
  - DRY MOUTH [None]
  - DYSPHAGIA [None]
  - PRURITUS [None]
  - RASH [None]
  - SWOLLEN TONGUE [None]
